FAERS Safety Report 18831806 (Version 2)
Quarter: 2022Q1

REPORT INFORMATION
  Report Type: Spontaneous
  Country: US (occurrence: US)
  Receive Date: 20210203
  Receipt Date: 20220127
  Transmission Date: 20220423
  Serious: No
  Sender: FDA-Public Use
  Company Number: US-ALLERGAN-2038094US

PATIENT
  Age: 49 Year
  Sex: Female

DRUGS (4)
  1. BOTOX COSMETIC [Suspect]
     Active Substance: ONABOTULINUMTOXINA
     Indication: Skin wrinkling
     Dosage: 6 UNITS, SINGLE
     Route: 030
     Dates: start: 20200827, end: 20200827
  2. BOTOX COSMETIC [Suspect]
     Active Substance: ONABOTULINUMTOXINA
     Indication: Skin wrinkling
     Dosage: 20 UNITS, SINGLE
     Route: 030
     Dates: start: 20200827, end: 20200827
  3. BOTOX COSMETIC [Suspect]
     Active Substance: ONABOTULINUMTOXINA
     Indication: Skin wrinkling
  4. JUVEDERM VOLUMA XC [Concomitant]
     Active Substance: HYALURONIC ACID\LIDOCAINE HYDROCHLORIDE
     Dosage: UNK
     Dates: start: 20200827, end: 20200827

REACTIONS (6)
  - Multiple use of single-use product [Unknown]
  - Product preparation error [Unknown]
  - Wrong technique in product usage process [Unknown]
  - Off label use [Unknown]
  - Eyelid ptosis [Not Recovered/Not Resolved]
  - Drug ineffective [Unknown]

NARRATIVE: CASE EVENT DATE: 20200828
